FAERS Safety Report 4351444-8 (Version None)
Quarter: 2004Q2

REPORT INFORMATION
  Report Type: 
  Country: None (occurrence: None)
  Receive Date: 20040503
  Receipt Date: 20010628
  Transmission Date: 20050107
  Serious: Yes (Hospitalization)
  Sender: FDA-Public Use
  Company Number: BR-ROCHE-263837

PATIENT
  Age: 51 Year
  Sex: Male
  Weight: 60.5 kg

DRUGS (16)
  1. ENFUVIRTIDE [Suspect]
     Indication: HIV INFECTION
     Route: 058
     Dates: start: 20010612, end: 20011220
  2. STAVUDINE [Concomitant]
     Dates: start: 20010612
  3. RITONAVIR [Concomitant]
     Dates: start: 20010612
  4. SAQUINAVIR [Concomitant]
     Dates: start: 20010612
  5. PROPRANOLOL [Concomitant]
     Dates: start: 19960615
  6. CAPTOPRIL [Concomitant]
     Dates: start: 19960615
  7. ITRACONAZOLE [Concomitant]
     Dates: start: 20001115
  8. CLINDAMYCIN HCL [Concomitant]
     Dates: start: 19940615
  9. PIRIMETAMINA [Concomitant]
     Dates: start: 19941108
  10. LEUCOVORIN CALCIUM [Concomitant]
     Dates: start: 19940615
  11. AZITHROMYCIN [Concomitant]
     Dates: start: 20010115
  12. AMITRIPTYLINE HCL [Concomitant]
     Dates: start: 19980615, end: 20020108
  13. PENTAMIDINE [Concomitant]
     Dates: start: 19941108
  14. LOPINAVIR [Concomitant]
     Dates: start: 20010821
  15. AMPRENAVIR [Concomitant]
     Dates: start: 20010824
  16. LAMIVUDINE [Concomitant]
     Dates: start: 20010821

REACTIONS (6)
  - CRANIAL NERVE DISORDER [None]
  - GASTRIC DISORDER [None]
  - PYREXIA [None]
  - SINUSITIS [None]
  - SYNCOPE [None]
  - VOMITING [None]
